FAERS Safety Report 5981841-6 (Version None)
Quarter: 2008Q4

REPORT INFORMATION
  Report Type: 
  Country: None (occurrence: None)
  Receive Date: 20081202
  Receipt Date: 20081118
  Transmission Date: 20090506
  Serious: Yes (Other)
  Sender: FDA-Public Use
  Company Number: 232943J08USA

PATIENT
  Age: 40 Year
  Sex: Female
  Weight: 74 kg

DRUGS (4)
  1. REBIF [Suspect]
     Indication: MULTIPLE SCLEROSIS
     Dosage: 44 MCG, 3 IN 1 WEEKS
     Dates: start: 20030821, end: 20080226
  2. NEURONTIN [Concomitant]
  3. MAXALT (RIZATRIPTAN) [Concomitant]
  4. DEPAKOTE [Concomitant]

REACTIONS (5)
  - ABDOMINAL PAIN UPPER [None]
  - ANAEMIA [None]
  - MICTURITION URGENCY [None]
  - POLLAKIURIA [None]
  - UTERINE LEIOMYOMA [None]
